FAERS Safety Report 10240856 (Version 1)
Quarter: 2014Q2

REPORT INFORMATION
  Report Type: Spontaneous
  Country: FR (occurrence: FR)
  Receive Date: 20140617
  Receipt Date: 20140617
  Transmission Date: 20141212
  Serious: Yes (Hospitalization)
  Sender: FDA-Public Use
  Company Number: PHHY2014FR073720

PATIENT
  Age: 62 Year
  Sex: Female

DRUGS (13)
  1. NEORAL [Suspect]
     Dosage: UNK
     Dates: start: 20140509
  2. INEXIUM [Suspect]
     Dosage: 40 MG, QD
     Route: 048
     Dates: start: 201405
  3. INEXIUM [Suspect]
     Dosage: UNK UKN, UNK
     Route: 048
     Dates: start: 20140518, end: 20140522
  4. CELLCEPT [Concomitant]
     Dosage: UNK
  5. LERCANIDIPINE MYLAN [Concomitant]
     Dosage: UNK
     Dates: start: 20140512, end: 20140517
  6. KARDEGIC [Concomitant]
     Dosage: UNK
     Dates: start: 20140515, end: 20140517
  7. STILNOX [Concomitant]
     Dosage: UNK UKN, UNK
     Dates: start: 20140516, end: 20140517
  8. PARACETAMOL [Concomitant]
     Dosage: UNK
     Dates: start: 20140514, end: 20140516
  9. LOVENOX [Concomitant]
     Dosage: UNK
     Dates: start: 20140514, end: 20140517
  10. METHYLPREDNISOLONE [Concomitant]
     Dosage: 120 MG, QD
     Dates: start: 20140510, end: 20140512
  11. METHYLPREDNISOLONE [Concomitant]
     Dosage: 250 MG, DAILY
     Route: 042
  12. CORTANCYL [Concomitant]
     Dosage: UNK
     Dates: start: 20140513, end: 20140513
  13. CORTANCYL [Concomitant]
     Dosage: 120 MG, DAILY
     Route: 048

REACTIONS (1)
  - Haemolytic anaemia [Recovering/Resolving]
